FAERS Safety Report 8223382-1 (Version None)
Quarter: 2012Q1

REPORT INFORMATION
  Report Type: 
  Country: None (occurrence: None)
  Receive Date: 20120312
  Receipt Date: 20120223
  Transmission Date: 20120608
  Serious: Yes (Death)
  Sender: FDA-Public Use
  Company Number: 7068626

PATIENT
  Age: 34 Year
  Sex: Female

DRUGS (2)
  1. LEVOTHYROXINE SODIUM [Suspect]
     Indication: PRODUCT USED FOR UNKNOWN INDICATION
     Dosage: (50 MCG), INTRAVENOUS (NOT OTHERWISE SPECIFIED), 100 MCG, INTRAVENOUS (NOT OTHERWISE SPECIFIED)
     Route: 042
  2. LEVOTHYROXINE SODIUM [Suspect]
     Dosage: ORAL
     Route: 048

REACTIONS (6)
  - DYSPNOEA [None]
  - PRE-ECLAMPSIA [None]
  - CONDITION AGGRAVATED [None]
  - RENAL IMPAIRMENT [None]
  - FOETAL DEATH [None]
  - MATERNAL EXPOSURE DURING PREGNANCY [None]
